FAERS Safety Report 9388764 (Version 2)
Quarter: 2013Q4

REPORT INFORMATION
  Report Type: Report from Study
  Country: FR (occurrence: FR)
  Receive Date: 20130708
  Receipt Date: 20131106
  Transmission Date: 20140711
  Serious: Yes (Hospitalization)
  Sender: FDA-Public Use
  Company Number: FR-GLAXOSMITHKLINE-B0905570A

PATIENT
  Age: 57 Year
  Sex: Female

DRUGS (7)
  1. LAPATINIB [Suspect]
     Indication: BREAST CANCER METASTATIC
     Dosage: 750MG PER DAY
     Route: 048
     Dates: start: 20130529
  2. BKM120 [Suspect]
     Indication: BREAST CANCER METASTATIC
     Dosage: 80MG PER DAY
     Route: 048
     Dates: start: 20130529
  3. TRAMADOL [Concomitant]
     Dates: start: 20130611
  4. ULCAR [Concomitant]
     Dates: start: 20130611
  5. XYLOCAINE [Concomitant]
  6. BICARBONATE [Concomitant]
     Dates: start: 20130611
  7. GIVALEX [Concomitant]
     Dates: start: 20130611

REACTIONS (2)
  - Mouth ulceration [Recovered/Resolved]
  - Diarrhoea [Recovered/Resolved]
